FAERS Safety Report 10870312 (Version 1)
Quarter: 2015Q1

REPORT INFORMATION
  Report Type: Spontaneous
  Country: FR (occurrence: FR)
  Receive Date: 20150226
  Receipt Date: 20150226
  Transmission Date: 20150721
  Serious: Yes (Hospitalization)
  Sender: FDA-Public Use
  Company Number: FR-ASTRAZENECA-2015SE16594

PATIENT
  Age: 61 Year
  Sex: Male

DRUGS (13)
  1. AMAREL [Concomitant]
     Active Substance: GLIMEPIRIDE
  2. UNFRACTIONATED HEPARIN [Concomitant]
     Active Substance: HEPARIN SODIUM
     Dates: start: 20141230
  3. ZOVIRAX [Concomitant]
     Active Substance: ACYCLOVIR
  4. ACTRAPID [Concomitant]
     Active Substance: INSULIN HUMAN
  5. GLUCOPHAGE [Concomitant]
     Active Substance: METFORMIN HYDROCHLORIDE
  6. INEXIUM [Suspect]
     Active Substance: ESOMEPRAZOLE
     Route: 048
     Dates: start: 20150113, end: 20150119
  7. TERCIAN [Concomitant]
     Active Substance: CYAMEMAZINE
  8. VICTOZA [Concomitant]
     Active Substance: LIRAGLUTIDE
  9. FORTUM [Suspect]
     Active Substance: CEFTAZIDIME
     Route: 065
     Dates: start: 20150110, end: 20150119
  10. STILNOX [Concomitant]
     Active Substance: ZOLPIDEM TARTRATE
  11. RISPERDAL [Concomitant]
     Active Substance: RISPERIDONE
  12. NICARDIPINE [Concomitant]
     Active Substance: NICARDIPINE
  13. SEROPRAM [Concomitant]
     Active Substance: CITALOPRAM HYDROBROMIDE

REACTIONS (2)
  - Rash erythematous [Unknown]
  - Acute generalised exanthematous pustulosis [Unknown]

NARRATIVE: CASE EVENT DATE: 20150114
